FAERS Safety Report 9351478 (Version 2)
Quarter: 2013Q3

REPORT INFORMATION
  Report Type: Spontaneous
  Country: US (occurrence: US)
  Receive Date: 20130617
  Receipt Date: 20130725
  Transmission Date: 20140515
  Serious: Yes (Death)
  Sender: FDA-Public Use
  Company Number: US-B.I. PHARMACEUTICALS,INC./RIDGEFIELD-2013-BI-16890BP

PATIENT
  Age: 68 Year
  Sex: Female
  Weight: 89.63 kg

DRUGS (14)
  1. PRADAXA [Suspect]
     Indication: ATRIAL FIBRILLATION
     Dosage: 300 MG
     Route: 048
     Dates: end: 20130520
  2. SALBUTAMOL [Concomitant]
  3. BENADRYL [Concomitant]
  4. LOSARTAN [Concomitant]
  5. VERAPAMIL [Concomitant]
  6. TRAMADOL [Concomitant]
  7. GABAPENTIN [Concomitant]
  8. OMEPRAZOLE [Concomitant]
  9. LIPITOR [Concomitant]
  10. HYDRALAZINE [Concomitant]
  11. CLONAZEPAM [Concomitant]
  12. FUROSEMIDE [Concomitant]
  13. LEVOTHYROXINE [Concomitant]
  14. SULINDAC [Concomitant]

REACTIONS (1)
  - Haemorrhage intracranial [Fatal]
